FAERS Safety Report 15095715 (Version 1)
Quarter: 2018Q3

REPORT INFORMATION
  Report Type: Spontaneous
  Country: US (occurrence: US)
  Receive Date: 20180702
  Receipt Date: 20180702
  Transmission Date: 20181010
  Serious: Yes (Hospitalization)
  Sender: FDA-Public Use
  Company Number: US-BIOGEN-2006BI014710

PATIENT
  Age: 45 Year
  Sex: Female

DRUGS (3)
  1. AVONEX [Suspect]
     Active Substance: INTERFERON BETA-1A
     Route: 065
     Dates: start: 19981023, end: 20060818
  2. AVONEX [Suspect]
     Active Substance: INTERFERON BETA-1A
     Indication: MULTIPLE SCLEROSIS
     Route: 030
     Dates: start: 1998, end: 20060818
  3. AVONEX [Suspect]
     Active Substance: INTERFERON BETA-1A
     Route: 065
     Dates: start: 20060918, end: 200610

REACTIONS (6)
  - Multiple sclerosis relapse [Not Recovered/Not Resolved]
  - Drug ineffective [Not Recovered/Not Resolved]
  - Alcohol abuse [Recovered/Resolved]
  - Nuclear magnetic resonance imaging brain abnormal [Unknown]
  - Drug abuse [Recovered/Resolved]
  - Urinary tract infection [Recovered/Resolved]

NARRATIVE: CASE EVENT DATE: 200508
